FAERS Safety Report 8103600-0 (Version None)
Quarter: 2012Q1

REPORT INFORMATION
  Report Type: 
  Country: None (occurrence: None)
  Receive Date: 20120201
  Receipt Date: 20120116
  Transmission Date: 20120608
  Serious: Yes (Other)
  Sender: FDA-Public Use
  Company Number: DE-ROCHE-1034911

PATIENT
  Age: 60 Year

DRUGS (1)
  1. MABTHERA [Suspect]
     Indication: VASCULITIS

REACTIONS (2)
  - THROMBOCYTOPENIA [None]
  - CYTOMEGALOVIRUS VIRAEMIA [None]
